FAERS Safety Report 20109176 (Version 4)
Quarter: 2022Q3

REPORT INFORMATION
  Report Type: Spontaneous
  Country: US (occurrence: US)
  Receive Date: 20211124
  Receipt Date: 20220816
  Transmission Date: 20221026
  Serious: Yes (Other)
  Sender: FDA-Public Use
  Company Number: US-PFIZER INC-202101281273

PATIENT
  Age: 53 Year
  Sex: Female

DRUGS (3)
  1. XELJANZ XR [Suspect]
     Active Substance: TOFACITINIB CITRATE
     Indication: Rheumatoid arthritis
     Dosage: 11 MG, 1X/DAY
     Route: 048
     Dates: start: 20210831, end: 202207
  2. XELJANZ XR [Suspect]
     Active Substance: TOFACITINIB CITRATE
     Dosage: 11 MG, 1X/DAY (ONCE DAILY)
     Route: 048
     Dates: start: 20210831, end: 202201
  3. METHOTREXATE [Concomitant]
     Active Substance: METHOTREXATE
     Dosage: UNK

REACTIONS (14)
  - Immunodeficiency [Unknown]
  - Arthritis [Unknown]
  - Product dose omission in error [Unknown]
  - Intentional product misuse [Unknown]
  - Drug effect less than expected [Unknown]
  - Anaemia [Unknown]
  - Upper-airway cough syndrome [Not Recovered/Not Resolved]
  - Fatigue [Unknown]
  - Respiratory tract congestion [Unknown]
  - Arthropathy [Unknown]
  - Tinnitus [Unknown]
  - Contusion [Unknown]
  - Blood test abnormal [Unknown]
  - Blood cholesterol increased [Unknown]

NARRATIVE: CASE EVENT DATE: 20210101
